FAERS Safety Report 19567550 (Version 11)
Quarter: 2021Q3

REPORT INFORMATION
  Report Type: Report from Study
  Country: GB (occurrence: GB)
  Receive Date: 20210715
  Receipt Date: 20210920
  Transmission Date: 20211014
  Serious: Yes (Hospitalization)
  Sender: FDA-Public Use
  Company Number: GB-EISAI MEDICAL RESEARCH-EC-2021-096169

PATIENT
  Age: 48 Year
  Sex: Female
  Weight: 60 kg

DRUGS (15)
  1. PEMETREXED. [Suspect]
     Active Substance: PEMETREXED
     Route: 041
     Dates: start: 20210608, end: 20210608
  2. CELECOXIB. [Concomitant]
     Active Substance: CELECOXIB
     Dates: start: 20210304
  3. PEMBROLIZUMAB. [Suspect]
     Active Substance: PEMBROLIZUMAB
     Indication: NON-SMALL CELL LUNG CANCER METASTATIC
     Route: 041
     Dates: start: 20210223, end: 20210518
  4. OMEPRAZOLE. [Concomitant]
     Active Substance: OMEPRAZOLE
     Dates: start: 20201231
  5. PREGABALIN. [Concomitant]
     Active Substance: PREGABALIN
     Dates: start: 20210224
  6. MORPHINE SULFATE. [Concomitant]
     Active Substance: MORPHINE SULFATE
     Dates: start: 20210329
  7. LENVATINIB [Suspect]
     Active Substance: LENVATINIB
     Indication: NON-SMALL CELL LUNG CANCER METASTATIC
     Route: 048
     Dates: start: 20210223
  8. PEMBROLIZUMAB. [Suspect]
     Active Substance: PEMBROLIZUMAB
     Route: 041
     Dates: start: 20210608, end: 20210608
  9. PEMETREXED. [Suspect]
     Active Substance: PEMETREXED
     Indication: NON-SMALL CELL LUNG CANCER METASTATIC
     Route: 041
     Dates: start: 20210223, end: 20210518
  10. PEMETREXED. [Suspect]
     Active Substance: PEMETREXED
     Route: 041
     Dates: start: 20210720
  11. CARBOPLATIN. [Concomitant]
     Active Substance: CARBOPLATIN
     Indication: NON-SMALL CELL LUNG CANCER METASTATIC
     Route: 042
     Dates: start: 20210223, end: 20210427
  12. LAXIDO [Concomitant]
     Active Substance: POLYETHYLENE GLYCOL 3350\POTASSIUM CHLORIDE\SODIUM BICARBONATE\SODIUM CHLORIDE
     Dates: start: 20201231
  13. FOLIC ACID. [Concomitant]
     Active Substance: FOLIC ACID
     Dates: start: 20210215
  14. ACETAMINOPHEN. [Concomitant]
     Active Substance: ACETAMINOPHEN
     Dates: start: 20210224
  15. PEMBROLIZUMAB. [Suspect]
     Active Substance: PEMBROLIZUMAB
     Route: 041
     Dates: start: 20210720

REACTIONS (1)
  - Pneumonia [Recovered/Resolved with Sequelae]

NARRATIVE: CASE EVENT DATE: 20210626
